FAERS Safety Report 6442079-1 (Version None)
Quarter: 2009Q4

REPORT INFORMATION
  Report Type: 
  Country: None (occurrence: None)
  Receive Date: 20091116
  Receipt Date: 20091103
  Transmission Date: 20100525
  Serious: Yes (Other)
  Sender: FDA-Public Use
  Company Number: PHHY2009BR48581

PATIENT
  Sex: Male
  Weight: 2.62 kg

DRUGS (1)
  1. TEGRETOL-XR [Suspect]
     Dosage: MATERNAL DOSE WAS 200 MG/DAY
     Route: 064

REACTIONS (2)
  - DRUG EXPOSURE DURING PREGNANCY [None]
  - PREMATURE BABY [None]
